FAERS Safety Report 23404582 (Version 2)
Quarter: 2024Q1

REPORT INFORMATION
  Report Type: Other
  Country: HU (occurrence: None)
  Receive Date: 20240116
  Receipt Date: 20240129
  Transmission Date: 20240410
  Serious: Yes (Death)
  Sender: FDA-Public Use
  Company Number: HU-ROCHE-3489484

PATIENT
  Age: 8 Year
  Sex: Male

DRUGS (5)
  1. RISDIPLAM [Suspect]
     Active Substance: RISDIPLAM
     Indication: Spinal muscular atrophy
     Route: 065
     Dates: start: 20201019, end: 20240101
  2. SUPRAX [Concomitant]
     Active Substance: CEFIXIME
  3. VIGANTOL [Concomitant]
  4. HYDROCHLOROTHIAZIDE [Concomitant]
     Active Substance: HYDROCHLOROTHIAZIDE
  5. ENTEROL (HUNGARY) [Concomitant]

REACTIONS (1)
  - Emphysema [Fatal]

NARRATIVE: CASE EVENT DATE: 20240101
